FAERS Safety Report 12953016 (Version 4)
Quarter: 2017Q1

REPORT INFORMATION
  Report Type: Spontaneous
  Country: US (occurrence: US)
  Receive Date: 20161117
  Receipt Date: 20170213
  Transmission Date: 20170428
  Serious: Yes (Death, Hospitalization)
  Sender: FDA-Public Use
  Company Number: US-ACTELION-A-NJ2016-145624

PATIENT
  Age: 66 Year
  Sex: Male

DRUGS (4)
  1. ORENITRAM [Concomitant]
     Active Substance: TREPROSTINIL
     Dosage: UNK
     Dates: end: 20161208
  2. DILTIAZEM. [Concomitant]
     Active Substance: DILTIAZEM
  3. REVATIO [Concomitant]
     Active Substance: SILDENAFIL CITRATE
  4. TRACLEER [Suspect]
     Active Substance: BOSENTAN
     Indication: PULMONARY ARTERIAL HYPERTENSION
     Dosage: 125 MG, BID
     Route: 048
     Dates: start: 20130812, end: 20161208

REACTIONS (7)
  - Blood sodium decreased [Unknown]
  - Vomiting [Unknown]
  - Death [Fatal]
  - Oedema [Unknown]
  - Abdominal discomfort [Unknown]
  - Ocular icterus [Unknown]
  - Cardiac failure [Unknown]

NARRATIVE: CASE EVENT DATE: 20161221
